FAERS Safety Report 23731009 (Version 1)
Quarter: 2024Q2

REPORT INFORMATION
  Report Type: Other
  Country: US (occurrence: US)
  Receive Date: 20240411
  Receipt Date: 20240411
  Transmission Date: 20240715
  Serious: Yes (Death, Hospitalization)
  Sender: FDA-Public Use
  Company Number: US-ALVOGEN-2024093364

PATIENT
  Age: 39 Year
  Sex: Male

DRUGS (6)
  1. DEXTROAMPHET SACCHARAT, AMPHET ASPARTATE, DEXTROAMPHET SULFATE AND AMP [Suspect]
     Active Substance: AMPHETAMINE ASPARTATE\AMPHETAMINE ASPARTATE MONOHYDRATE\AMPHETAMINE SULFATE\DEXTROAMPHETAMINE SACCHA
     Indication: Product used for unknown indication
     Route: 048
  2. OXYCODONE [Suspect]
     Active Substance: OXYCODONE\OXYCODONE HYDROCHLORIDE
     Indication: Product used for unknown indication
     Route: 048
  3. MERCURY [Suspect]
     Active Substance: MERCURY
     Indication: Product used for unknown indication
     Dosage: MERCURY (ELEMENTAL)
     Route: 055
  4. BENZODIAZEPINE [Suspect]
     Active Substance: BENZODIAZEPINE
     Indication: Product used for unknown indication
     Route: 048
  5. CANNABIS SATIVA SUBSP. INDICA TOP [Suspect]
     Active Substance: CANNABIS SATIVA SUBSP. INDICA TOP
     Indication: Product used for unknown indication
     Route: 048
  6. COCAINE [Suspect]
     Active Substance: COCAINE
     Indication: Product used for unknown indication
     Route: 048

REACTIONS (7)
  - Toxicity to various agents [Fatal]
  - Pneumonitis [Fatal]
  - Acute respiratory distress syndrome [Fatal]
  - Arthralgia [Fatal]
  - Myalgia [Fatal]
  - Pain [Fatal]
  - Product use issue [Fatal]
